FAERS Safety Report 5534135-7 (Version None)
Quarter: 2007Q4

REPORT INFORMATION
  Report Type: 
  Country: None (occurrence: None)
  Receive Date: 20071129
  Receipt Date: 20071129
  Transmission Date: 20080405
  Serious: Yes (Hospitalization)
  Sender: FDA-Public Use
  Company Number: None

PATIENT
  Sex: Male
  Weight: 72 kg

DRUGS (2)
  1. CYTARABINE [Suspect]
     Dosage: 28800 MG
     Dates: end: 20070901
  2. ETOPOSIDE [Suspect]
     Dosage: 2720 MG
     Dates: end: 20070901

REACTIONS (3)
  - CENTRAL LINE INFECTION [None]
  - PSEUDOMONAS INFECTION [None]
  - STAPHYLOCOCCAL INFECTION [None]
